FAERS Safety Report 14823375 (Version 3)
Quarter: 2018Q2

REPORT INFORMATION
  Report Type: Spontaneous
  Country: US (occurrence: US)
  Receive Date: 20180427
  Receipt Date: 20180523
  Transmission Date: 20180711
  Serious: Yes (Other)
  Sender: FDA-Public Use
  Company Number: US-GLAXOSMITHKLINE-US2018GSK071493

PATIENT
  Sex: Female

DRUGS (8)
  1. ALORA PATCH [Concomitant]
  2. VICODIN [Concomitant]
     Active Substance: ACETAMINOPHEN\HYDROCODONE BITARTRATE
     Dosage: 7.5 MG, Q 4 HOURS
  3. TOPAMAX [Concomitant]
     Active Substance: TOPIRAMATE
     Dosage: 600 MG, QD
  4. SUMATRIPTAN (SUMATRIPTAN SUCCINATE) [Suspect]
     Active Substance: SUMATRIPTAN SUCCINATE
     Indication: MIGRAINE
     Dosage: UNK, PRN
  5. LEVOTHYROXINE. [Concomitant]
     Active Substance: LEVOTHYROXINE
     Dosage: 10 MG, QD
  6. ATENOLOL. [Concomitant]
     Active Substance: ATENOLOL
     Dosage: 50 MG, UNK
  7. XANAX [Concomitant]
     Active Substance: ALPRAZOLAM
     Dosage: 1 MG, UNK
  8. MELATONIN [Concomitant]
     Active Substance: MELATONIN
     Dosage: 10-12 MG

REACTIONS (13)
  - Emotional distress [Unknown]
  - Cluster headache [Unknown]
  - Product substitution issue [Unknown]
  - Product quality issue [Unknown]
  - Injection site pain [Unknown]
  - Injection site reaction [Unknown]
  - Product availability issue [Unknown]
  - Drug dose omission [Unknown]
  - Injection site laceration [Unknown]
  - Oxygen therapy [Unknown]
  - Migraine [Unknown]
  - Drug ineffective [Unknown]
  - Hypersensitivity [Unknown]
